FAERS Safety Report 4444995-9 (Version None)
Quarter: 2004Q3

REPORT INFORMATION
  Report Type: 
  Country: None (occurrence: None)
  Receive Date: 20040908
  Receipt Date: 20040908
  Transmission Date: 20050211
  Serious: Yes (Hospitalization)
  Sender: FDA-Public Use
  Company Number: None

PATIENT
  Age: 70 Year
  Sex: Male

DRUGS (8)
  1. WARFARIN SODIUM [Suspect]
     Dosage: 5 MG QD
     Dates: start: 20010201
  2. CIPRO [Concomitant]
  3. LORTAB [Concomitant]
  4. BUPROPION HCL [Concomitant]
  5. FELOPIPINE [Concomitant]
  6. VIAGRA [Concomitant]
  7. LISINOPRIL [Concomitant]
  8. TERAZOS [Concomitant]

REACTIONS (2)
  - CYST [None]
  - HAEMORRHAGE [None]
